FAERS Safety Report 10211143 (Version 1)
Quarter: 2014Q2

REPORT INFORMATION
  Report Type: Spontaneous
  Country: JP (occurrence: JP)
  Receive Date: 20140602
  Receipt Date: 20140602
  Transmission Date: 20141212
  Serious: Yes (Other)
  Sender: FDA-Public Use
  Company Number: JP-SA-2014SA070471

PATIENT
  Age: 58 Year
  Sex: Male
  Weight: 80 kg

DRUGS (4)
  1. MYSLEE [Suspect]
     Indication: SUICIDE ATTEMPT
     Route: 048
     Dates: start: 20140518, end: 20140518
  2. ALL OTHER THERAPEUTIC PRODUCTS [Concomitant]
     Dates: start: 20140518, end: 20140518
  3. ALL OTHER THERAPEUTIC PRODUCTS [Concomitant]
     Dosage: STRENGTH: 50 MG
     Dates: start: 20140518, end: 20140518
  4. ALL OTHER THERAPEUTIC PRODUCTS [Concomitant]
     Dosage: STRENGTH: 2 MG
     Dates: start: 20140518, end: 20140518

REACTIONS (6)
  - Suicide attempt [Unknown]
  - Miosis [Unknown]
  - Dysarthria [Unknown]
  - Somnolence [Unknown]
  - Vomiting [Unknown]
  - Intentional overdose [Unknown]
